FAERS Safety Report 15698021 (Version 1)
Quarter: 2018Q4

REPORT INFORMATION
  Report Type: Report from Study
  Country: None (occurrence: CO)
  Receive Date: 20181207
  Receipt Date: 20181207
  Transmission Date: 20190205
  Serious: Yes (Hospitalization)
  Sender: FDA-Public Use
  Company Number: CO-ABBVIE-18K-036-2316254-00

PATIENT
  Age: 59 Year
  Sex: Male
  Weight: 99 kg

DRUGS (1)
  1. HUMIRA [Suspect]
     Active Substance: ADALIMUMAB
     Indication: PSORIASIS
     Route: 058
     Dates: start: 20120330, end: 20180208

REACTIONS (5)
  - Tuberculin test positive [Unknown]
  - Psoriasis [Unknown]
  - Pulmonary artery dilatation [Unknown]
  - Influenza [Recovering/Resolving]
  - Pulmonary mass [Recovering/Resolving]

NARRATIVE: CASE EVENT DATE: 201803
